FAERS Safety Report 7545753-9 (Version None)
Quarter: 2011Q2

REPORT INFORMATION
  Report Type: 
  Country: None (occurrence: None)
  Receive Date: 20110614
  Receipt Date: 20110606
  Transmission Date: 20111010
  Serious: Yes (Death, Other)
  Sender: FDA-Public Use
  Company Number: JP-JNJFOC-20101208004

PATIENT
  Sex: Female
  Weight: 63 kg

DRUGS (37)
  1. GENTACIN [Concomitant]
     Indication: PRODUCT USED FOR UNKNOWN INDICATION
     Route: 061
     Dates: start: 20090925, end: 20091123
  2. DECADRON [Concomitant]
     Route: 042
     Dates: start: 20090915, end: 20090915
  3. DECADRON [Concomitant]
     Route: 042
     Dates: start: 20100324, end: 20100327
  4. DECADRON [Concomitant]
     Route: 042
     Dates: start: 20091026, end: 20091127
  5. DOXORUBICIN HCL [Suspect]
     Dosage: CYCLE 3
     Route: 042
     Dates: start: 20091124, end: 20091124
  6. DOXORUBICIN HCL [Suspect]
     Dosage: CYCLE 2
     Route: 042
     Dates: start: 20091020, end: 20091020
  7. ISODINE GARGLE [Concomitant]
     Indication: PRODUCT USED FOR UNKNOWN INDICATION
     Route: 002
     Dates: start: 20090928, end: 20091030
  8. PYDOXAL [Concomitant]
     Route: 042
     Dates: start: 20091026, end: 20091107
  9. COCARBOXYLASE [Concomitant]
     Route: 042
     Dates: start: 20091026, end: 20091127
  10. FULMETA [Concomitant]
     Indication: PRODUCT USED FOR UNKNOWN INDICATION
     Route: 061
     Dates: start: 20090928, end: 20091123
  11. DECADRON [Concomitant]
     Indication: NAUSEA
     Route: 042
     Dates: start: 20091201
  12. DECADRON [Concomitant]
     Route: 042
     Dates: start: 20091020, end: 20091020
  13. FENTANYL-100 [Concomitant]
     Route: 062
     Dates: start: 20101220, end: 20110329
  14. KYTRIL [Concomitant]
     Route: 042
     Dates: start: 20090915, end: 20090915
  15. KYTRIL [Concomitant]
     Route: 042
     Dates: start: 20091020, end: 20091020
  16. DECADRON [Concomitant]
     Indication: PROPHYLAXIS
     Route: 042
     Dates: start: 20091201
  17. DOXORUBICIN HCL [Suspect]
     Dosage: CYCLE 7
     Route: 042
     Dates: start: 20100323, end: 20100323
  18. ADJUST-A [Concomitant]
     Indication: PRODUCT USED FOR UNKNOWN INDICATION
     Route: 048
     Dates: start: 20090921, end: 20110311
  19. KYTRIL [Concomitant]
     Indication: PROPHYLAXIS
     Route: 042
     Dates: start: 20100324, end: 20100327
  20. KYTRIL [Concomitant]
     Route: 042
     Dates: start: 20091026, end: 20091127
  21. DECADRON [Concomitant]
     Route: 042
     Dates: start: 20091026, end: 20091127
  22. DECADRON [Concomitant]
     Route: 042
     Dates: start: 20091020, end: 20091020
  23. AFTACH [Concomitant]
     Route: 061
     Dates: start: 20091008, end: 20091021
  24. DOXORUBICIN HCL [Suspect]
     Indication: OVARIAN CANCER RECURRENT
     Dosage: CYCLE 6
     Route: 042
     Dates: start: 20100223, end: 20100223
  25. HALCION [Concomitant]
     Indication: PRODUCT USED FOR UNKNOWN INDICATION
     Route: 048
     Dates: start: 20090924, end: 20090930
  26. DECADRON [Concomitant]
     Route: 042
     Dates: start: 20100324, end: 20100327
  27. DECADRON [Concomitant]
     Route: 042
     Dates: start: 20090915, end: 20090915
  28. DOXORUBICIN HCL [Suspect]
     Dosage: CYCLE 5
     Route: 042
     Dates: start: 20100126, end: 20100126
  29. MUCOSTA [Concomitant]
     Indication: PROPHYLAXIS
     Route: 048
     Dates: start: 20090920, end: 20091003
  30. LAXOBERON [Concomitant]
     Indication: PRODUCT USED FOR UNKNOWN INDICATION
     Route: 048
     Dates: start: 20090922, end: 20091030
  31. DOXORUBICIN HCL [Suspect]
     Dosage: CYCLE 4
     Route: 042
     Dates: start: 20091222, end: 20091222
  32. DOXORUBICIN HCL [Suspect]
     Dosage: CYCLE 1
     Route: 042
     Dates: start: 20090915, end: 20090915
  33. OXYCONTIN [Concomitant]
     Indication: PRODUCT USED FOR UNKNOWN INDICATION
     Route: 048
     Dates: start: 20090919, end: 20101219
  34. VOLTAREN [Concomitant]
     Indication: PRODUCT USED FOR UNKNOWN INDICATION
     Route: 048
     Dates: start: 20090920, end: 20091003
  35. BIODIASTASE-NATURAL AGENTS COMBINED DRUG [Concomitant]
     Indication: PRODUCT USED FOR UNKNOWN INDICATION
     Route: 048
     Dates: start: 20090926, end: 20091002
  36. KYTRIL [Concomitant]
     Route: 042
     Dates: start: 20091201
  37. VISCORIN [Concomitant]
     Route: 042
     Dates: start: 20091026, end: 20091107

REACTIONS (2)
  - EPIDERMOLYSIS [None]
  - OVARIAN CANCER RECURRENT [None]
